FAERS Safety Report 17198920 (Version 1)
Quarter: 2019Q4

REPORT INFORMATION
  Report Type: Spontaneous
  Country: CN (occurrence: CN)
  Receive Date: 20191225
  Receipt Date: 20191225
  Transmission Date: 20200122
  Serious: Yes (Other)
  Sender: FDA-Public Use
  Company Number: NVSC2019CN076167

PATIENT
  Age: 68 Year
  Sex: Male

DRUGS (4)
  1. METOPROLOL. [Concomitant]
     Active Substance: METOPROLOL
     Indication: PRODUCT USED FOR UNKNOWN INDICATION
     Dosage: 47.5 MG, QD
     Route: 048
  2. EXFORGE [Suspect]
     Active Substance: AMLODIPINE BESYLATE\VALSARTAN
     Indication: HYPERTENSION
     Dosage: 1 DF, QD
     Route: 048
  3. METFORMIN [Suspect]
     Active Substance: METFORMIN HYDROCHLORIDE
     Indication: DIABETES MELLITUS
     Dosage: 0.5 G, BID
     Route: 048
  4. REPAGLINIDE. [Suspect]
     Active Substance: REPAGLINIDE
     Indication: PRODUCT USED FOR UNKNOWN INDICATION
     Dosage: 50 MG, TID
     Route: 065

REACTIONS (19)
  - Type 2 diabetes mellitus [Unknown]
  - Arteriosclerotic retinopathy [Unknown]
  - Hypertension [Unknown]
  - Aortic arteriosclerosis [Unknown]
  - Nephrotic syndrome [Unknown]
  - Urine abnormality [Unknown]
  - Haemangioma of liver [Unknown]
  - Oedema peripheral [Unknown]
  - Ventricular septal defect [Unknown]
  - Glomerulonephritis membranous [Unknown]
  - Renal cyst [Unknown]
  - Blood albumin decreased [Unknown]
  - Gallbladder enlargement [Unknown]
  - Jugular vein distension [Unknown]
  - Carotid arteriosclerosis [Unknown]
  - Blood cholesterol increased [Unknown]
  - Blood calcium decreased [Unknown]
  - Hyperlipidaemia [Unknown]
  - Hyperuricaemia [Unknown]
